FAERS Safety Report 4357067-9 (Version None)
Quarter: 2004Q2

REPORT INFORMATION
  Report Type: 
  Country: None (occurrence: None)
  Receive Date: 20040507
  Receipt Date: 20040419
  Transmission Date: 20050107
  Serious: Yes (Disabling)
  Sender: FDA-Public Use
  Company Number: WAES 0212DEU00021

PATIENT
  Age: 42 Year
  Sex: Male

DRUGS (6)
  1. ZETIA [Suspect]
     Indication: TYPE IIA HYPERLIPIDAEMIA
     Dosage: 10 MG/DAILY
     Route: 048
     Dates: start: 20021107, end: 20021129
  2. ATORVASTATIN CALCIUM [Suspect]
     Indication: TYPE IIA HYPERLIPIDAEMIA
     Dosage: 80 MG/DAILY
     Route: 048
     Dates: start: 20010501, end: 20021129
  3. ATORVASTATIN CALCIUM [Suspect]
     Indication: TYPE IIA HYPERLIPIDAEMIA
     Dosage: 80 MG/DAILY
     Route: 048
     Dates: start: 20021201
  4. ASPIRIN [Concomitant]
  5. LISINOPRIL [Concomitant]
  6. METOPROLOL [Concomitant]

REACTIONS (6)
  - BLOOD CREATINE PHOSPHOKINASE INCREASED [None]
  - DRUG INTERACTION [None]
  - IMPAIRED WORK ABILITY [None]
  - MYALGIA [None]
  - MYOSITIS [None]
  - TENDON DISORDER [None]
